FAERS Safety Report 20961033 (Version 3)
Quarter: 2022Q3

REPORT INFORMATION
  Report Type: Spontaneous
  Country: US (occurrence: US)
  Receive Date: 20220615
  Receipt Date: 20220916
  Transmission Date: 20221027
  Serious: No
  Sender: FDA-Public Use
  Company Number: US-PFIZER INC-202200773153

PATIENT
  Age: 12 Year
  Sex: Male
  Weight: 72.57 kg

DRUGS (2)
  1. GENOTROPIN [Suspect]
     Active Substance: SOMATROPIN
     Indication: Blood growth hormone
     Dosage: 1.4 MG, DAILY
  2. DUPIXENT [Concomitant]
     Active Substance: DUPILUMAB
     Indication: Eczema
     Dosage: UNK, ONE SHOT DOSE
     Dates: start: 202204

REACTIONS (4)
  - Device use error [Unknown]
  - Drug dose omission by device [Unknown]
  - Incorrect dose administered [Unknown]
  - Intentional product misuse [Unknown]

NARRATIVE: CASE EVENT DATE: 20220526
